FAERS Safety Report 8610746-7 (Version None)
Quarter: 2012Q3

REPORT INFORMATION
  Report Type: 
  Country: None (occurrence: None)
  Receive Date: 20120808
  Receipt Date: 20120726
  Transmission Date: 20120928
  Serious: Yes (Death)
  Sender: FDA-Public Use
  Company Number: EU-2011-10576

PATIENT
  Age: 76 Year
  Sex: Female
  Weight: 69 kg

DRUGS (10)
  1. SAMSCA [Suspect]
     Indication: HEPATIC CIRRHOSIS
     Dosage: 30 MG MILLIGRAM(S), DAILY DOSE, ORAL, 30 MG MILLIGRAM(S), DAILY DOSE, ORAL
     Route: 048
     Dates: start: 20111106, end: 20111107
  2. SAMSCA [Suspect]
     Indication: HYPONATRAEMIA
     Dosage: 30 MG MILLIGRAM(S), DAILY DOSE, ORAL, 30 MG MILLIGRAM(S), DAILY DOSE, ORAL
     Route: 048
     Dates: start: 20111106, end: 20111107
  3. SAMSCA [Suspect]
     Indication: HEPATIC CIRRHOSIS
     Dosage: 30 MG MILLIGRAM(S), DAILY DOSE, ORAL, 30 MG MILLIGRAM(S), DAILY DOSE, ORAL
     Route: 048
     Dates: start: 20111109, end: 20111110
  4. SAMSCA [Suspect]
     Indication: HYPONATRAEMIA
     Dosage: 30 MG MILLIGRAM(S), DAILY DOSE, ORAL, 30 MG MILLIGRAM(S), DAILY DOSE, ORAL
     Route: 048
     Dates: start: 20111109, end: 20111110
  5. OMEPRAZOLE [Concomitant]
  6. FUROSEMID (FUROSEMID) [Concomitant]
  7. ATROVENT [Concomitant]
  8. LAKTULOS (LACTULOSE) [Concomitant]
     Indication: HYPONATRAEMIA
  9. ACETYLCYSTEIN (ACETYLCYSTEIN) [Concomitant]
  10. SPIRONOLACTONE [Concomitant]

REACTIONS (5)
  - ASCITES [None]
  - ENCEPHALOPATHY [None]
  - OFF LABEL USE [None]
  - DISEASE PROGRESSION [None]
  - HEPATIC CIRRHOSIS [None]
